FAERS Safety Report 12210239 (Version 1)
Quarter: 2016Q1

REPORT INFORMATION
  Report Type: Spontaneous
  Country: JP (occurrence: JP)
  Receive Date: 20160325
  Receipt Date: 20160325
  Transmission Date: 20160526
  Serious: Yes (Hospitalization, Other)
  Sender: FDA-Public Use
  Company Number: JP-PAR PHARMACEUTICAL COMPANIES-2016SCPR015272

PATIENT

DRUGS (8)
  1. VANCOMYCIN [Concomitant]
     Active Substance: VANCOMYCIN
     Indication: COLITIS ULCERATIVE
     Dosage: 2000 MG, / DAY
     Route: 048
  2. METRONIDAZOLE. [Suspect]
     Active Substance: METRONIDAZOLE
     Indication: COLITIS ULCERATIVE
     Dosage: 500 MG, / DAY
     Route: 065
  3. PREDNISOLONE. [Concomitant]
     Active Substance: PREDNISOLONE
     Dosage: 40 MG, / DAY
     Route: 042
  4. ACICLOVIR [Suspect]
     Active Substance: ACYCLOVIR
     Indication: HERPES SIMPLEX ENCEPHALITIS
     Dosage: 1500 MG / DAY
     Route: 042
  5. CEFAZOLIN [Concomitant]
     Active Substance: CEFAZOLIN
     Indication: COLITIS ULCERATIVE
     Dosage: 2 G, / DAY
     Route: 042
  6. 5-AMINOSALICYLIC ACID [Concomitant]
     Active Substance: MESALAMINE
     Indication: COLITIS ULCERATIVE
     Dosage: 2250 MG, / DAY
     Route: 048
  7. PREDNISOLONE. [Concomitant]
     Active Substance: PREDNISOLONE
     Dosage: 50 MG, / DAY
     Route: 042
  8. PREDNISOLONE. [Concomitant]
     Active Substance: PREDNISOLONE
     Indication: COLITIS ULCERATIVE
     Dosage: 60 MG, / DAY
     Route: 042

REACTIONS (2)
  - Posterior reversible encephalopathy syndrome [Recovering/Resolving]
  - Cerebral venous thrombosis [Unknown]
